FAERS Safety Report 9681053 (Version 2)
Quarter: 2013Q4

REPORT INFORMATION
  Report Type: Spontaneous
  Country: US (occurrence: US)
  Receive Date: 20131111
  Receipt Date: 20131114
  Transmission Date: 20140711
  Serious: Yes (Other)
  Sender: FDA-Public Use
  Company Number: 2013SP003225

PATIENT
  Age: 14 Year
  Sex: Male
  Weight: 74 kg

DRUGS (12)
  1. LATUDA [Suspect]
     Indication: MAJOR DEPRESSION
     Route: 048
     Dates: start: 20131103
  2. LATUDA [Suspect]
     Indication: ANXIETY
     Route: 048
     Dates: start: 20131103
  3. LATUDA [Suspect]
     Indication: MAJOR DEPRESSION
     Route: 048
     Dates: start: 2013, end: 20131102
  4. LATUDA [Suspect]
     Indication: ANXIETY
     Route: 048
     Dates: start: 2013, end: 20131102
  5. LATUDA [Suspect]
     Indication: MAJOR DEPRESSION
     Route: 048
     Dates: start: 2013, end: 2013
  6. LATUDA [Suspect]
     Indication: ANXIETY
     Route: 048
     Dates: start: 2013, end: 2013
  7. LATUDA [Suspect]
     Indication: MAJOR DEPRESSION
     Route: 048
     Dates: start: 201308, end: 2013
  8. LATUDA [Suspect]
     Indication: ANXIETY
     Route: 048
     Dates: start: 201308, end: 2013
  9. LAMICTAL [Concomitant]
     Indication: PRODUCT USED FOR UNKNOWN INDICATION
  10. RISPERDAL [Concomitant]
     Indication: PRODUCT USED FOR UNKNOWN INDICATION
  11. SEROQUEL XR [Concomitant]
     Indication: PRODUCT USED FOR UNKNOWN INDICATION
     Dates: start: 201308, end: 201308
  12. ABILIFY [Concomitant]
     Indication: PRODUCT USED FOR UNKNOWN INDICATION

REACTIONS (13)
  - Loss of consciousness [Recovered/Resolved]
  - Syncope [Recovered/Resolved]
  - Feeling abnormal [Unknown]
  - Unresponsive to stimuli [Recovered/Resolved]
  - Malaise [Recovered/Resolved]
  - Dehydration [Unknown]
  - Hypotonia [Unknown]
  - Blood pressure decreased [Unknown]
  - Drug ineffective for unapproved indication [None]
  - Dyskinesia [Unknown]
  - Dizziness [Unknown]
  - Nausea [Unknown]
  - Vomiting [Unknown]
